FAERS Safety Report 6074758-2 (Version None)
Quarter: 2009Q1

REPORT INFORMATION
  Report Type: 
  Country: None (occurrence: None)
  Receive Date: 20090212
  Receipt Date: 20090209
  Transmission Date: 20090719
  Serious: Yes (Other)
  Sender: FDA-Public Use
  Company Number: FR-JNJFOC-20090201803

PATIENT
  Age: 48 Year
  Sex: Female

DRUGS (6)
  1. RISPERDAL CONSTA [Suspect]
     Indication: MENTAL DISORDER
     Route: 030
  2. RISPERDAL [Suspect]
     Route: 048
  3. RISPERDAL [Suspect]
     Indication: MENTAL DISORDER
     Route: 048
  4. ZOLOFT [Concomitant]
     Indication: ANTIDEPRESSANT THERAPY
     Route: 065
  5. SERESTA [Concomitant]
     Route: 065
  6. SERESTA [Concomitant]
     Route: 065

REACTIONS (3)
  - CONVULSION [None]
  - HYPOTENSION [None]
  - LOSS OF CONSCIOUSNESS [None]
